FAERS Safety Report 22165737 (Version 1)
Quarter: 2023Q2

REPORT INFORMATION
  Report Type: Spontaneous
  Country: GB (occurrence: GB)
  Receive Date: 20230403
  Receipt Date: 20230403
  Transmission Date: 20230721
  Serious: Yes (Other)
  Sender: FDA-Public Use
  Company Number: GB-MHRA-MED-202303230928507140-ZWQBK

PATIENT
  Age: 88 Year
  Sex: Male
  Weight: 68 kg

DRUGS (2)
  1. CLOPIDOGREL [Suspect]
     Active Substance: CLOPIDOGREL BISULFATE
     Indication: Transient ischaemic attack
     Dosage: 75 MILLIGRAM
     Route: 065
     Dates: end: 20230323
  2. FAMOTIDINE [Concomitant]
     Active Substance: FAMOTIDINE
     Indication: Adverse drug reaction
     Dosage: UNK
     Route: 065
     Dates: start: 20210504

REACTIONS (2)
  - Angioedema [Recovering/Resolving]
  - Lip swelling [Recovering/Resolving]

NARRATIVE: CASE EVENT DATE: 20230322
